FAERS Safety Report 11399346 (Version 1)
Quarter: 2015Q3

REPORT INFORMATION
  Report Type: Spontaneous
  Country: FR (occurrence: FR)
  Receive Date: 20150820
  Receipt Date: 20150820
  Transmission Date: 20151125
  Serious: Yes (Life-Threatening, Hospitalization, Other)
  Sender: FDA-Public Use
  Company Number: FR-PFIZER INC-2015276793

PATIENT
  Age: 39 Year
  Sex: Female
  Weight: 76 kg

DRUGS (4)
  1. DOLIPRANE [Suspect]
     Active Substance: ACETAMINOPHEN
     Dosage: 18000 MG, SINGLE (18 DF OF 1G)
     Route: 048
     Dates: start: 20150615, end: 20150615
  2. ACETAMINOPHEN AND CODEINE [Suspect]
     Active Substance: ACETAMINOPHEN\CODEINE PHOSPHATE
     Dosage: 23 DF (400/20MG), SINGLE
     Route: 048
     Dates: start: 20150615, end: 20150615
  3. NAPROXEN. [Suspect]
     Active Substance: NAPROXEN
     Dosage: 5000 MG, SINGLE (10 DF OF 500MG)
     Route: 048
     Dates: start: 20150615, end: 20150615
  4. CELEBREX [Suspect]
     Active Substance: CELECOXIB
     Dosage: 40 DF (100MG), SINGLE
     Route: 048
     Dates: start: 20150615, end: 20150615

REACTIONS (4)
  - Somnolence [Recovered/Resolved]
  - Poisoning deliberate [Recovered/Resolved]
  - Analgesic drug level increased [Recovered/Resolved]
  - Hypokalaemia [Recovered/Resolved]

NARRATIVE: CASE EVENT DATE: 20150615
